FAERS Safety Report 12820215 (Version 1)
Quarter: 2016Q4

REPORT INFORMATION
  Report Type: Report from Study
  Country: US (occurrence: US)
  Receive Date: 20161006
  Receipt Date: 20161006
  Transmission Date: 20170207
  Serious: No
  Sender: FDA-Public Use
  Company Number: US-AMGEN-USASL2015129270

PATIENT
  Age: 80 Year
  Sex: Female

DRUGS (1)
  1. PROLIA [Suspect]
     Active Substance: DENOSUMAB
     Indication: PRODUCT USED FOR UNKNOWN INDICATION
     Dosage: UNK, UNK
     Route: 065
     Dates: start: 201506

REACTIONS (7)
  - Rotator cuff syndrome [Unknown]
  - Back pain [Unknown]
  - Fatigue [Unknown]
  - Muscular weakness [Unknown]
  - Fall [Unknown]
  - Gait disturbance [Unknown]
  - Blood cholesterol increased [Unknown]
